FAERS Safety Report 4936081-6 (Version None)
Quarter: 2006Q1

REPORT INFORMATION
  Report Type: 
  Country: None (occurrence: None)
  Receive Date: 20060307
  Receipt Date: 20051004
  Transmission Date: 20060701
  Serious: No
  Sender: FDA-Public Use
  Company Number: US-GLAXOSMITHKLINE-A0576971A

PATIENT
  Sex: Male
  Weight: 159.1 kg

DRUGS (12)
  1. REQUIP [Suspect]
     Indication: RESTLESS LEGS SYNDROME
     Dosage: 1MG PER DAY
     Route: 048
  2. GABITRIL [Concomitant]
  3. KLONOPIN [Concomitant]
  4. BACLOFEN [Concomitant]
  5. PROZAC [Concomitant]
  6. PRILOSEC [Concomitant]
  7. BENADRYL [Concomitant]
  8. ATENOLOL [Concomitant]
  9. MINOCYCLINE HCL [Concomitant]
  10. WELLBUTRIN [Concomitant]
  11. CLARITIN [Concomitant]
  12. PROVIGIL [Concomitant]

REACTIONS (2)
  - DRUG INEFFECTIVE [None]
  - HEADACHE [None]
